FAERS Safety Report 13902337 (Version 3)
Quarter: 2019Q1

REPORT INFORMATION
  Report Type: Spontaneous
  Country: NL (occurrence: NL)
  Receive Date: 20170824
  Receipt Date: 20190308
  Transmission Date: 20190417
  Serious: Yes (Other)
  Sender: FDA-Public Use
  Company Number: NL-ACCORD-057509

PATIENT
  Age: 24 Year
  Sex: Female

DRUGS (6)
  1. CYPROTERONE ACETATE/ETHINYLESTRADIOL (CYPROTERONE ACETAE) [Concomitant]
     Active Substance: CYPROTERONE ACETATE\ETHINYL ESTRADIOL
     Route: 048
  2. TOPIRAMATE. [Suspect]
     Active Substance: TOPIRAMATE
     Indication: TOURETTE^S DISORDER
  3. ARIPIPRAZOLE. [Suspect]
     Active Substance: ARIPIPRAZOLE
     Indication: TOURETTE^S DISORDER
  4. RISPERIDONE. [Suspect]
     Active Substance: RISPERIDONE
     Indication: TOURETTE^S DISORDER
     Dosage: ADDITIONAL DOSE: 5 MG (DRUG WITHDRAWN)
  5. CITALOPRAM [Suspect]
     Active Substance: CITALOPRAM HYDROBROMIDE
     Indication: DEPRESSED MOOD
  6. PIPAMPERONE/PIPAMPERONE HYDROCHLORIDE [Suspect]
     Active Substance: PIPAMPERONE HYDROCHLORIDE
     Indication: TOURETTE^S DISORDER

REACTIONS (6)
  - Headache [Unknown]
  - Dizziness [Unknown]
  - Off label use [Unknown]
  - Hyperprolactinaemia [Unknown]
  - Galactorrhoea [Unknown]
  - Drug ineffective [Unknown]
